FAERS Safety Report 6963430-X (Version None)
Quarter: 2010Q3

REPORT INFORMATION
  Report Type: 
  Country: None (occurrence: None)
  Receive Date: 20100902
  Receipt Date: 20100823
  Transmission Date: 20110219
  Serious: Yes (Hospitalization)
  Sender: FDA-Public Use
  Company Number: B0627421A

PATIENT
  Sex: Female

DRUGS (3)
  1. VALTREX [Suspect]
     Indication: HERPES ZOSTER
     Dosage: 3000MG PER DAY
     Route: 048
     Dates: start: 20091229, end: 20100104
  2. NSAIDS [Suspect]
     Route: 065
  3. LOXONIN [Concomitant]
     Indication: PAIN
     Route: 048
     Dates: start: 20091229, end: 20100106

REACTIONS (1)
  - RENAL FAILURE ACUTE [None]
